FAERS Safety Report 18632656 (Version 1)
Quarter: 2020Q4

REPORT INFORMATION
  Report Type: Other
  Country: US (occurrence: US)
  Receive Date: 20201218
  Receipt Date: 20201218
  Transmission Date: 20210114
  Serious: Yes (Hospitalization, Other)
  Sender: FDA-Public Use
  Company Number: US-ROCHE-2732832

PATIENT
  Sex: Male
  Weight: 85.5 kg

DRUGS (16)
  1. VENCLEXTA [Suspect]
     Active Substance: VENETOCLAX
     Route: 048
     Dates: start: 20200803
  2. GAZYVA [Suspect]
     Active Substance: OBINUTUZUMAB
     Indication: CHRONIC LYMPHOCYTIC LEUKAEMIA
     Dosage: C1
     Route: 042
     Dates: start: 20200707
  3. GAZYVA [Suspect]
     Active Substance: OBINUTUZUMAB
     Dosage: C4
     Route: 042
     Dates: start: 20201012
  4. PANTOPRAZOLE [Concomitant]
     Active Substance: PANTOPRAZOLE
     Route: 048
     Dates: start: 20200817
  5. GAZYVA [Suspect]
     Active Substance: OBINUTUZUMAB
     Dosage: OBINUTUZUMAB ADMINISTERED ON 08/JUL/2020, 09/JUL/2020, 13/JUL/2020 AND 20/JUL/2020
     Route: 042
  6. GAZYVA [Suspect]
     Active Substance: OBINUTUZUMAB
     Dosage: C5
     Route: 042
     Dates: start: 20200909
  7. ONDANSETRON [Concomitant]
     Active Substance: ONDANSETRON
     Route: 048
     Dates: start: 20200706
  8. ALLOPURINOL. [Concomitant]
     Active Substance: ALLOPURINOL
     Route: 048
     Dates: start: 20200618
  9. GAZYVA [Suspect]
     Active Substance: OBINUTUZUMAB
     Dosage: C2
     Route: 042
     Dates: start: 20200810
  10. PROCHLORPERAZINE. [Concomitant]
     Active Substance: PROCHLORPERAZINE
     Route: 048
     Dates: start: 20200706
  11. VENCLEXTA [Suspect]
     Active Substance: VENETOCLAX
     Indication: CHRONIC LYMPHOCYTIC LEUKAEMIA
     Dosage: TAKE 4 TABLET(S) BY MOUTH EVERY DAY FOR 28 DAYS CHEMO CYCLE
     Route: 048
     Dates: start: 20200818
  12. ACYCLOVIR. [Concomitant]
     Active Substance: ACYCLOVIR
     Route: 048
     Dates: start: 20200706
  13. VENCLEXTA [Suspect]
     Active Substance: VENETOCLAX
     Route: 048
     Dates: start: 20200810
  14. VENCLEXTA [Suspect]
     Active Substance: VENETOCLAX
     Route: 048
     Dates: start: 20200727
  15. GAZYVA [Suspect]
     Active Substance: OBINUTUZUMAB
     Dosage: C3
     Route: 042
     Dates: start: 20200915
  16. ELIQUIS [Concomitant]
     Active Substance: APIXABAN
     Route: 048
     Dates: start: 20200914

REACTIONS (4)
  - COVID-19 pneumonia [Unknown]
  - Dry eye [Unknown]
  - Acute respiratory failure [Unknown]
  - COVID-19 [Unknown]
